FAERS Safety Report 21691389 (Version 2)
Quarter: 2022Q4

REPORT INFORMATION
  Report Type: Spontaneous
  Country: US (occurrence: US)
  Receive Date: 20221207
  Receipt Date: 20221210
  Transmission Date: 20230113
  Serious: No
  Sender: FDA-Public Use
  Company Number: US-UNITED THERAPEUTICS-UNT-2022-029284

PATIENT
  Sex: Male
  Weight: 111.11 kg

DRUGS (2)
  1. REMODULIN [Suspect]
     Active Substance: TREPROSTINIL
     Indication: Pulmonary arterial hypertension
     Dosage: 0.0025 ?G/KG, CONTINUING (SELF FILLED WITH 1.7ML PER CASSETTE; AT PUMP RATE OF 17 MCL PER HOUR)
     Route: 058
     Dates: start: 20221128
  2. TADALAFIL [Concomitant]
     Active Substance: TADALAFIL
     Indication: Product used for unknown indication
     Dosage: UNK
     Route: 065

REACTIONS (4)
  - Infusion site pain [Not Recovered/Not Resolved]
  - Device failure [Recovered/Resolved]
  - Infusion site erythema [Unknown]
  - Device power source issue [Recovered/Resolved]

NARRATIVE: CASE EVENT DATE: 20220101
